FAERS Safety Report 15436689 (Version 2)
Quarter: 2018Q4

REPORT INFORMATION
  Report Type: Spontaneous
  Country: US (occurrence: US)
  Receive Date: 20180927
  Receipt Date: 20181026
  Transmission Date: 20190204
  Serious: Yes (Hospitalization, Other)
  Sender: FDA-Public Use
  Company Number: US-PFIZER INC-2018390257

PATIENT
  Age: 67 Year
  Sex: Female
  Weight: 82 kg

DRUGS (6)
  1. IBRANCE [Suspect]
     Active Substance: PALBOCICLIB
     Dosage: UNK
     Dates: start: 20180901, end: 20180919
  2. DULOXETINE. [Concomitant]
     Active Substance: DULOXETINE
     Indication: NEUROPATHY PERIPHERAL
     Dosage: 30 MG, 1X/DAY (2 CAPSULES)
  3. IBRANCE [Suspect]
     Active Substance: PALBOCICLIB
     Dosage: 75 MG, CYCLIC (75MG 1 X DAY FOR 21 DAYS, OFF 7DAY)
     Route: 048
     Dates: start: 20180329
  4. FASLODEX [Concomitant]
     Active Substance: FULVESTRANT
     Dosage: UNK, MONTHLY
  5. IBRANCE [Suspect]
     Active Substance: PALBOCICLIB
     Indication: BREAST CANCER METASTATIC
     Dosage: 100 MG, CYCLIC
  6. IBRANCE [Suspect]
     Active Substance: PALBOCICLIB
     Indication: INFLAMMATORY CARCINOMA OF THE BREAST
     Dosage: 75 MG, CYCLIC (ONCE A DAY)
     Route: 048
     Dates: end: 201809

REACTIONS (26)
  - Back pain [Unknown]
  - Bladder disorder [Unknown]
  - Burning sensation [Unknown]
  - Rib fracture [Unknown]
  - Spinal osteoarthritis [Unknown]
  - Nausea [Recovered/Resolved]
  - Full blood count decreased [Recovered/Resolved]
  - Hot flush [Unknown]
  - Nerve compression [Unknown]
  - Sneezing [Recovered/Resolved]
  - Pain [Recovered/Resolved]
  - Neuralgia [Not Recovered/Not Resolved]
  - Decreased appetite [Unknown]
  - Pulmonary embolism [Unknown]
  - Osteophyte fracture [Unknown]
  - Headache [Unknown]
  - Paranasal sinus discomfort [Unknown]
  - Fatigue [Not Recovered/Not Resolved]
  - Infection [Recovered/Resolved]
  - Osteoarthritis [Unknown]
  - Pulmonary thrombosis [Unknown]
  - Muscle spasms [Not Recovered/Not Resolved]
  - Arthralgia [Not Recovered/Not Resolved]
  - Musculoskeletal chest pain [Not Recovered/Not Resolved]
  - Tremor [Recovered/Resolved]
  - Stomatitis [Unknown]

NARRATIVE: CASE EVENT DATE: 20180913
